FAERS Safety Report 8355122-X (Version None)
Quarter: 2012Q2

REPORT INFORMATION
  Report Type: 
  Country: None (occurrence: None)
  Receive Date: 20120511
  Receipt Date: 20120504
  Transmission Date: 20120825
  Serious: Yes (Life-Threatening)
  Sender: FDA-Public Use
  Company Number: FR-JNJFOC-20120506482

PATIENT
  Sex: Female

DRUGS (5)
  1. ATARAX [Concomitant]
  2. ABILIFY [Concomitant]
  3. ZOLPIDEM [Concomitant]
  4. REMICADE [Suspect]
     Indication: ANKYLOSING SPONDYLITIS
     Route: 042
     Dates: start: 20091030, end: 20120124
  5. PAROXETINE HYDROCHLORIDE [Concomitant]

REACTIONS (1)
  - BREAST CANCER [None]
